FAERS Safety Report 6941385-1 (Version None)
Quarter: 2010Q3

REPORT INFORMATION
  Report Type: 
  Country: None (occurrence: None)
  Receive Date: 20100824
  Receipt Date: 20100824
  Transmission Date: 20110219
  Serious: Yes (Other)
  Sender: FDA-Public Use
  Company Number: None

PATIENT
  Sex: Female

DRUGS (7)
  1. PROMETHAZINE 12.5-25 MG Q 4 PRN 042 [Suspect]
     Indication: NAUSEA
     Dosage: 12.5-25 MG Q4 PRN 042
     Dates: start: 20100507, end: 20100512
  2. HYDROMORPHONE 1-2 MG [Suspect]
     Indication: ABDOMINAL PAIN
     Dosage: 1-2 MG Q4 PRN 042
     Dates: start: 20100507, end: 20100512
  3. GABAPENTIN [Concomitant]
  4. HYOSCYAMINE SULFATE [Concomitant]
  5. PANTOPRAZOLE [Concomitant]
  6. AMITRIPTYLINE HCL [Concomitant]
  7. VICODIN [Concomitant]

REACTIONS (2)
  - INFUSION SITE EXTRAVASATION [None]
  - INFUSION SITE PHLEBITIS [None]
